FAERS Safety Report 19210917 (Version 1)
Quarter: 2021Q2

REPORT INFORMATION
  Report Type: Report from Study
  Country: None (occurrence: CA)
  Receive Date: 20210501
  Receipt Date: 20210501
  Transmission Date: 20210717
  Serious: Yes (Death, Other)
  Sender: FDA-Public Use
  Company Number: CA-ABBVIE-21K-028-3787962-00

PATIENT
  Age: 67 Year
  Sex: Female

DRUGS (1)
  1. HUMIRA [Suspect]
     Active Substance: ADALIMUMAB
     Indication: CROHN^S DISEASE
     Route: 058
     Dates: start: 20161205

REACTIONS (5)
  - Death [Fatal]
  - Pharyngeal mass [Not Recovered/Not Resolved]
  - Dysphagia [Unknown]
  - Feeding disorder [Not Recovered/Not Resolved]
  - Tonsil cancer [Unknown]

NARRATIVE: CASE EVENT DATE: 202012
